FAERS Safety Report 5674262-7 (Version None)
Quarter: 2008Q1

REPORT INFORMATION
  Report Type: 
  Country: None (occurrence: None)
  Receive Date: 20080320
  Receipt Date: 20080313
  Transmission Date: 20080703
  Serious: Yes (Other)
  Sender: FDA-Public Use
  Company Number: HQWYE341422JUL04

PATIENT
  Sex: Female
  Weight: 75.82 kg

DRUGS (8)
  1. PREMPRO [Suspect]
     Indication: MENOPAUSAL SYMPTOMS
     Dosage: 0.625MG/2.5MG
     Route: 048
     Dates: start: 19970101, end: 20000101
  2. PROVERA [Suspect]
  3. HYZAAR [Concomitant]
     Route: 048
  4. MEDROXYPROGESTERONE ACETATE [Suspect]
  5. LIPITOR [Concomitant]
  6. PREMARIN [Suspect]
     Indication: MENOPAUSAL SYMPTOMS
     Route: 048
     Dates: start: 20011201, end: 20020101
  7. PREMARIN [Suspect]
     Dosage: 0.625MG DAILY
     Route: 048
     Dates: start: 20000101
  8. ESTROGENS [Suspect]

REACTIONS (1)
  - BREAST CANCER METASTATIC [None]
